FAERS Safety Report 8852690 (Version 3)
Quarter: 2012Q4

REPORT INFORMATION
  Report Type: 
  Country: US (occurrence: US)
  Receive Date: 20121022
  Receipt Date: 20121231
  Transmission Date: 20130627
  Serious: No
  Sender: FDA-Public Use
  Company Number: US-VERTEX PHARMACEUTICAL INC.-2012-022902

PATIENT
  Age: 63 Year
  Sex: Male
  Weight: 121 kg

DRUGS (3)
  1. VX-950 (TELAPREVIR) [Suspect]
     Indication: HEPATITIS C
     Dosage: 750 mg, tid
     Route: 048
     Dates: start: 2012
  2. PEGINTRON                          /01543001/ [Suspect]
     Indication: HEPATITIS C
     Dosage: 150 MCG/ 0.5 ML,qw
     Route: 058
     Dates: start: 2012
  3. RIBAPAK [Suspect]
     Indication: HEPATITIS C
     Dosage: 200 mg AM, 400 mg PM
     Dates: start: 2012

REACTIONS (2)
  - Anorectal discomfort [Unknown]
  - Pruritus generalised [Unknown]
